FAERS Safety Report 6422241-4 (Version None)
Quarter: 2009Q4

REPORT INFORMATION
  Report Type: 
  Country: None (occurrence: None)
  Receive Date: 20091030
  Receipt Date: 20091020
  Transmission Date: 20100525
  Serious: Yes (Other)
  Sender: FDA-Public Use
  Company Number: US-GILEAD-2009-0022863

PATIENT

DRUGS (6)
  1. TRUVADA [Suspect]
     Indication: HIV INFECTION
     Route: 064
     Dates: start: 20090126, end: 20090224
  2. TRUVADA [Suspect]
     Route: 064
     Dates: start: 20090327
  3. RALTEGRAVIR [Concomitant]
     Indication: HIV INFECTION
     Route: 064
     Dates: start: 20090126, end: 20090224
  4. RALTEGRAVIR [Concomitant]
     Dates: start: 20090327
  5. ZIDOVUDINE [Concomitant]
     Indication: HIV INFECTION
     Route: 064
     Dates: start: 20090618
  6. ZIDOVUDINE [Concomitant]
     Route: 064
     Dates: start: 20091013, end: 20091013

REACTIONS (2)
  - CLEFT LIP AND PALATE [None]
  - ULTRASOUND ANTENATAL SCREEN ABNORMAL [None]
